FAERS Safety Report 21440841 (Version 4)
Quarter: 2022Q4

REPORT INFORMATION
  Report Type: Spontaneous
  Country: JP (occurrence: JP)
  Receive Date: 20221011
  Receipt Date: 20221128
  Transmission Date: 20230112
  Serious: Yes (Hospitalization)
  Sender: FDA-Public Use
  Company Number: JP-JNJFOC-20221001791

PATIENT
  Age: 6 Decade
  Sex: Male

DRUGS (17)
  1. IBRUTINIB [Suspect]
     Active Substance: IBRUTINIB
     Indication: Adult T-cell lymphoma/leukaemia
     Dosage: FIRST ADMINISTERED ON 25 APR 2022 AND DISCONTINUED 2022
     Route: 048
  2. IBRUTINIB [Suspect]
     Active Substance: IBRUTINIB
     Indication: Adult T-cell lymphoma/leukaemia
     Route: 048
     Dates: start: 2022
  3. MYCOPHENOLATE MOFETIL [Concomitant]
     Active Substance: MYCOPHENOLATE MOFETIL
     Indication: Prophylaxis against graft versus host disease
     Route: 065
  4. MYCOPHENOLATE MOFETIL [Concomitant]
     Active Substance: MYCOPHENOLATE MOFETIL
     Indication: Prophylaxis against graft versus host disease
     Dosage: DOSE UNKNOWN, GRADUALLY DECREASED
     Route: 065
  5. MYCOPHENOLATE MOFETIL [Concomitant]
     Active Substance: MYCOPHENOLATE MOFETIL
     Indication: Prophylaxis against graft versus host disease
     Dosage: DOSE UNKNOWN
     Route: 065
     Dates: start: 2022, end: 2022
  6. TACROLIMUS [Concomitant]
     Active Substance: TACROLIMUS
     Indication: Prophylaxis against graft versus host disease
     Dosage: UNKNOWN
     Route: 065
  7. TACROLIMUS [Concomitant]
     Active Substance: TACROLIMUS
     Indication: Prophylaxis against graft versus host disease
     Dosage: DOSE UNKNOWN
     Route: 065
  8. VORICONAZOLE [Concomitant]
     Active Substance: VORICONAZOLE
     Indication: Product used for unknown indication
     Route: 048
  9. VORICONAZOLE [Concomitant]
     Active Substance: VORICONAZOLE
     Indication: Product used for unknown indication
     Dosage: DOSE UNKNOWN
     Route: 048
  10. PREDNISOLONE [Concomitant]
     Active Substance: PREDNISOLONE
     Indication: Acute graft versus host disease
     Dosage: GRADUALLY DECREASED
     Route: 065
  11. PREDNISOLONE [Concomitant]
     Active Substance: PREDNISOLONE
     Indication: Acute graft versus host disease
     Dosage: GRADUALLY DECREASED
     Route: 065
  12. PREDNISOLONE [Concomitant]
     Active Substance: PREDNISOLONE
     Indication: Acute graft versus host disease
     Dosage: UNKNOWN
     Route: 065
  13. PREDNISOLONE [Concomitant]
     Active Substance: PREDNISOLONE
     Indication: Acute graft versus host disease
     Dosage: UNKNOWN
     Route: 065
  14. PREDNISOLONE [Concomitant]
     Active Substance: PREDNISOLONE
     Indication: Acute graft versus host disease
     Dosage: DOSE UNKNOWN, GRADUALLY DECREASED
     Route: 065
     Dates: start: 2022, end: 2022
  15. PREDNISOLONE [Concomitant]
     Active Substance: PREDNISOLONE
     Indication: Acute graft versus host disease
     Dosage: UNKNOWN
     Route: 065
  16. PREDNISOLONE [Concomitant]
     Active Substance: PREDNISOLONE
     Indication: Acute graft versus host disease
     Route: 065
  17. PREDNISOLONE [Concomitant]
     Active Substance: PREDNISOLONE
     Indication: Acute graft versus host disease
     Route: 065

REACTIONS (4)
  - Pulmonary oedema [Recovering/Resolving]
  - Pleural effusion [Recovering/Resolving]
  - Enterocolitis [Unknown]
  - Septic shock [Recovering/Resolving]

NARRATIVE: CASE EVENT DATE: 20220101
